FAERS Safety Report 23278836 (Version 1)
Quarter: 2023Q4

REPORT INFORMATION
  Report Type: Spontaneous
  Country: US (occurrence: US)
  Receive Date: 20231208
  Receipt Date: 20231208
  Transmission Date: 20240109
  Serious: No
  Sender: FDA-Public Use
  Company Number: US-NOVOPROD-1126103

PATIENT
  Age: 78 Year
  Sex: Female

DRUGS (2)
  1. NOVOLIN N [Suspect]
     Active Substance: INSULIN HUMAN
     Indication: Blood glucose increased
     Dosage: 12.5 IU, QD
     Route: 058
     Dates: start: 20230618
  2. PREDNISONE [Concomitant]
     Active Substance: PREDNISONE
     Indication: Renal vasculitis
     Dosage: 12.5 MG

REACTIONS (1)
  - Vision blurred [Not Recovered/Not Resolved]

NARRATIVE: CASE EVENT DATE: 20230601
